FAERS Safety Report 23984542 (Version 5)
Quarter: 2024Q3

REPORT INFORMATION
  Report Type: Spontaneous
  Country: US (occurrence: US)
  Receive Date: 20240618
  Receipt Date: 20240815
  Transmission Date: 20241017
  Serious: Yes (Other)
  Sender: BLUEPRINT MEDICINES
  Company Number: US-Blueprint Medicines Corporation-3879

PATIENT
  Age: 64 Year
  Sex: Female

DRUGS (5)
  1. AYVAKIT [Suspect]
     Active Substance: AVAPRITINIB
     Indication: Gastrointestinal stromal tumour
     Route: 065
     Dates: start: 20240430
  2. AYVAKIT [Suspect]
     Active Substance: AVAPRITINIB
     Route: 065
     Dates: start: 20240430
  3. AYVAKIT [Suspect]
     Active Substance: AVAPRITINIB
     Dosage: HALF TABLET
     Route: 065
     Dates: start: 20240805
  4. GABAPENTIN [Suspect]
     Active Substance: GABAPENTIN
     Indication: Pain in extremity
     Route: 065
  5. CLARITIN [Concomitant]
     Active Substance: LORATADINE
     Indication: Product used for unknown indication
     Route: 065

REACTIONS (9)
  - Diverticulitis [Unknown]
  - Pain in extremity [Unknown]
  - Alopecia [Unknown]
  - Urinary tract infection [Unknown]
  - Brain fog [Unknown]
  - Periorbital swelling [Unknown]
  - Hypersensitivity [Unknown]
  - Eye swelling [Unknown]
  - Swelling face [Unknown]

NARRATIVE: CASE EVENT DATE: 20240601
